FAERS Safety Report 19583891 (Version 2)
Quarter: 2021Q3

REPORT INFORMATION
  Report Type: Report from Study
  Country: ES (occurrence: ES)
  Receive Date: 20210720
  Receipt Date: 20210722
  Transmission Date: 20211014
  Serious: Yes (Hospitalization)
  Sender: FDA-Public Use
  Company Number: ES-BRISTOL-MYERS SQUIBB COMPANY-BMS-2021-057827

PATIENT
  Age: 22 Year
  Sex: Male

DRUGS (8)
  1. NIVOLUMAB [Suspect]
     Active Substance: NIVOLUMAB
     Indication: SOFT TISSUE SARCOMA
     Dosage: 240 MILLIGRAM, Q2WK
     Route: 065
     Dates: start: 20210528, end: 20210528
  2. SUNITINIB MALATE. [Suspect]
     Active Substance: SUNITINIB MALATE
     Dosage: 25 MG/DAY
     Route: 065
     Dates: start: 20210528, end: 20210610
  3. MORPHINE [Concomitant]
     Active Substance: MORPHINE
     Indication: TUMOUR PAIN
     Dosage: UNK
     Route: 065
     Dates: start: 20210521
  4. KETAMINE [Concomitant]
     Active Substance: KETAMINE
     Indication: TUMOUR PAIN
     Dosage: UNK
     Route: 065
     Dates: start: 20210521
  5. SUNITINIB MALATE. [Suspect]
     Active Substance: SUNITINIB MALATE
     Indication: SOFT TISSUE SARCOMA
     Dosage: 37.5 MG/DAY
     Route: 065
     Dates: start: 20210514, end: 20210527
  6. INDOMETACINE [Concomitant]
     Active Substance: INDOMETHACIN
     Indication: TUMOUR PAIN
     Dosage: UNK
     Route: 065
     Dates: start: 20210521
  7. NIVOLUMAB [Suspect]
     Active Substance: NIVOLUMAB
     Indication: BONE SARCOMA
  8. FAMOTIDINE. [Concomitant]
     Active Substance: FAMOTIDINE
     Indication: PROPHYLAXIS
     Dosage: UNK
     Route: 065
     Dates: start: 20210521

REACTIONS (1)
  - General physical health deterioration [Unknown]

NARRATIVE: CASE EVENT DATE: 20210610
